FAERS Safety Report 4900319-1 (Version None)
Quarter: 2006Q1

REPORT INFORMATION
  Report Type: 
  Country: None (occurrence: None)
  Receive Date: 20060203
  Receipt Date: 20060201
  Transmission Date: 20060701
  Serious: Yes (Hospitalization)
  Sender: FDA-Public Use
  Company Number: US-GLAXOSMITHKLINE-A0591914A

PATIENT
  Age: 58 Year
  Sex: Male

DRUGS (9)
  1. COREG [Suspect]
     Route: 048
     Dates: start: 19971001
  2. ANTIBIOTIC [Suspect]
     Indication: STAPHYLOCOCCAL INFECTION
     Dates: start: 19990101
  3. POTASSIUM [Concomitant]
  4. FUROSEMIDE [Concomitant]
  5. WARFARIN [Concomitant]
  6. ASPIRIN [Concomitant]
  7. ISOSORBIDE DINITRATE [Concomitant]
  8. OMEPRAZOLE [Concomitant]
  9. METHOCARBAMOL [Concomitant]

REACTIONS (6)
  - BLOOD PRESSURE DIASTOLIC INCREASED [None]
  - DEHYDRATION [None]
  - HIP ARTHROPLASTY [None]
  - STAPHYLOCOCCAL INFECTION [None]
  - STOMACH DISCOMFORT [None]
  - VOMITING [None]
